FAERS Safety Report 5494480-0 (Version None)
Quarter: 2007Q4

REPORT INFORMATION
  Report Type: 
  Country: None (occurrence: None)
  Receive Date: 20071023
  Receipt Date: 20071023
  Transmission Date: 20080405
  Serious: No
  Sender: FDA-Public Use
  Company Number: None

PATIENT
  Age: 64 Year
  Sex: Female
  Weight: 46.2669 kg

DRUGS (2)
  1. DILTIAZEM [Suspect]
     Indication: HYPERTENSION
     Dosage: 60MG  Q6HRS  PO
     Route: 048
  2. METOPROLOL   50MG AND 25MG   MYLAN PHARMACEUTICALS [Suspect]
     Indication: TACHYCARDIA
     Dosage: 75MG  Q12HRS   PO
     Route: 048

REACTIONS (4)
  - BALANCE DISORDER [None]
  - DIZZINESS POSTURAL [None]
  - ORTHOSTATIC HYPOTENSION [None]
  - VOMITING [None]
